FAERS Safety Report 24940158 (Version 2)
Quarter: 2025Q1

REPORT INFORMATION
  Report Type: Spontaneous
  Country: US (occurrence: US)
  Receive Date: 20250207
  Receipt Date: 20250207
  Transmission Date: 20250409
  Serious: Yes (Other)
  Sender: AMGEN
  Company Number: US-AMGEN-USASP2025021914

PATIENT
  Age: 40 Year
  Sex: Female

DRUGS (5)
  1. PREDNISONE [Suspect]
     Active Substance: PREDNISONE
     Indication: Central serous chorioretinopathy
     Route: 048
  2. AFLIBERCEPT [Suspect]
     Active Substance: AFLIBERCEPT
     Indication: Central serous chorioretinopathy
  3. AFLIBERCEPT [Suspect]
     Active Substance: AFLIBERCEPT
  4. BEVACIZUMAB [Suspect]
     Active Substance: BEVACIZUMAB
     Indication: Central serous chorioretinopathy
  5. FLUTICASONE [Concomitant]
     Active Substance: FLUTICASONE
     Route: 045

REACTIONS (4)
  - Central serous chorioretinopathy [Recovered/Resolved]
  - Drug effective for unapproved indication [Unknown]
  - Therapy non-responder [Unknown]
  - Off label use [Unknown]
